FAERS Safety Report 9426262 (Version 2)
Quarter: 2013Q3

REPORT INFORMATION
  Report Type: Spontaneous
  Country: US (occurrence: US)
  Receive Date: 20130730
  Receipt Date: 20130821
  Transmission Date: 20140515
  Serious: Yes (Other)
  Sender: FDA-Public Use
  Company Number: US-009507513-1307USA011547

PATIENT
  Age: 25 Year
  Sex: Female
  Weight: 117.1 kg

DRUGS (6)
  1. NEXPLANON [Suspect]
     Indication: CONTRACEPTION
     Dosage: UNK
     Route: 059
     Dates: start: 201209, end: 20130717
  2. TRAZODONE HYDROCHLORIDE [Concomitant]
  3. METFORMIN [Concomitant]
  4. VITAMIN D (UNSPECIFIED) [Concomitant]
  5. LAMICTAL [Concomitant]
  6. EFEXOR [Concomitant]

REACTIONS (4)
  - Headache [Recovered/Resolved]
  - Mood swings [Recovered/Resolved]
  - Device breakage [Recovered/Resolved]
  - Product quality issue [Unknown]
